FAERS Safety Report 5596533-5 (Version None)
Quarter: 2008Q1

REPORT INFORMATION
  Report Type: 
  Country: None (occurrence: None)
  Receive Date: 20080118
  Receipt Date: 20080107
  Transmission Date: 20080703
  Serious: Yes (Hospitalization, Other)
  Sender: FDA-Public Use
  Company Number: PFIZER INC-2008001621

PATIENT
  Sex: Male
  Weight: 114.3 kg

DRUGS (13)
  1. SUTENT [Suspect]
     Indication: TRANSITIONAL CELL CARCINOMA
     Route: 048
     Dates: start: 20070620, end: 20070803
  2. MS CONTIN [Concomitant]
     Indication: TUMOUR PAIN
  3. OMEPRAZOLE [Concomitant]
     Dates: start: 20070523
  4. LIPITOR [Concomitant]
     Dates: start: 20051104
  5. COMPAZINE [Concomitant]
     Dates: start: 20061018
  6. ALLOPURINOL [Concomitant]
     Dates: start: 20051104
  7. NIFEDIPINE [Concomitant]
     Dates: start: 20051104
  8. VICODIN [Concomitant]
     Dates: start: 20070705
  9. ASACOL [Concomitant]
     Dates: start: 20051104
  10. NITROGLYCERIN [Concomitant]
     Dates: start: 20051129
  11. SENNA [Concomitant]
     Dates: start: 20070705
  12. GEMCITABINE [Concomitant]
  13. PACLITAXEL [Concomitant]

REACTIONS (5)
  - ASTHENIA [None]
  - CONFUSIONAL STATE [None]
  - FATIGUE [None]
  - HAEMOGLOBIN DECREASED [None]
  - HALLUCINATION [None]
